FAERS Safety Report 5886178-1 (Version None)
Quarter: 2008Q3

REPORT INFORMATION
  Report Type: 
  Country: None (occurrence: None)
  Receive Date: 20080917
  Receipt Date: 20080910
  Transmission Date: 20090109
  Serious: Yes (Hospitalization)
  Sender: FDA-Public Use
  Company Number: US-WATSON-2008-05437

PATIENT
  Age: 81 Year
  Sex: Female

DRUGS (1)
  1. NAFCILLIN SODIUM (WATSON LABORATORIES) [Suspect]
     Indication: STAPHYLOCOCCAL SEPSIS
     Dosage: 12 G, DAILY
     Route: 065

REACTIONS (1)
  - HYPOKALAEMIA [None]
